FAERS Safety Report 23248730 (Version 1)
Quarter: 2023Q4

REPORT INFORMATION
  Report Type: Spontaneous
  Country: ES (occurrence: ES)
  Receive Date: 20231201
  Receipt Date: 20231201
  Transmission Date: 20240110
  Serious: No
  Sender: FDA-Public Use
  Company Number: ES-ALKEM LABORATORIES LIMITED-ES-ALKEM-2023-10689

PATIENT
  Weight: 67.7 kg

DRUGS (4)
  1. TACROLIMUS [Interacting]
     Active Substance: TACROLIMUS
     Indication: Prophylaxis against graft versus host disease
     Dosage: 0.03 MILLIGRAM/KILOGRAM (USING CONTINUOUS INFUSION)
     Route: 042
  2. TACROLIMUS [Interacting]
     Active Substance: TACROLIMUS
     Dosage: 0.06 MILLIGRAM/KILOGRAM, BID (EVERY 12 HOUR)
     Route: 048
  3. ISAVUCONAZOLE [Interacting]
     Active Substance: ISAVUCONAZOLE
     Indication: Antifungal prophylaxis
     Dosage: 0.5 MILLIGRAM, QD
     Route: 042
  4. ISAVUCONAZOLE [Interacting]
     Active Substance: ISAVUCONAZOLE
     Dosage: UNK (PREVENTIVE DOSE REDUCTION 50%)
     Route: 042

REACTIONS (2)
  - Drug level decreased [Unknown]
  - Drug interaction [Unknown]
